FAERS Safety Report 11892790 (Version 2)
Quarter: 2016Q1

REPORT INFORMATION
  Report Type: Spontaneous
  Country: US (occurrence: US)
  Receive Date: 20160106
  Receipt Date: 20160127
  Transmission Date: 20160526
  Serious: No
  Sender: FDA-Public Use
  Company Number: US-PFIZER INC-2015462210

PATIENT
  Age: 78 Year
  Sex: Female

DRUGS (2)
  1. GABAPENTIN. [Suspect]
     Active Substance: GABAPENTIN
     Indication: CHEST PAIN
     Dosage: 1200 MG, UNK
  2. GABAPENTIN. [Suspect]
     Active Substance: GABAPENTIN
     Dosage: 1500 MG, UNK

REACTIONS (6)
  - Vertigo [Unknown]
  - Somnolence [Unknown]
  - Dizziness [Unknown]
  - Discomfort [Unknown]
  - Vision blurred [Unknown]
  - Drug ineffective [Unknown]
